FAERS Safety Report 19518965 (Version 1)
Quarter: 2021Q3

REPORT INFORMATION
  Report Type: Spontaneous
  Country: US (occurrence: US)
  Receive Date: 20210709
  Receipt Date: 20210709
  Transmission Date: 20211014
  Serious: Yes (Hospitalization)
  Sender: FDA-Public Use
  Company Number: None

PATIENT
  Age: 50 Year
  Sex: Female

DRUGS (1)
  1. GLATIRAMER ACETATE. [Suspect]
     Active Substance: GLATIRAMER ACETATE
     Indication: MULTIPLE SCLEROSIS
     Route: 058
     Dates: start: 20190827, end: 20210518

REACTIONS (6)
  - Therapy cessation [None]
  - Intestinal obstruction [None]
  - Inability to afford medication [None]
  - Renal disorder [None]
  - Cardiac disorder [None]
  - Pneumonia [None]

NARRATIVE: CASE EVENT DATE: 20210518
